FAERS Safety Report 6528516-2 (Version None)
Quarter: 2010Q1

REPORT INFORMATION
  Report Type: 
  Country: None (occurrence: None)
  Receive Date: 20100106
  Receipt Date: 20091211
  Transmission Date: 20100710
  Serious: Yes (Other)
  Sender: FDA-Public Use
  Company Number: PHHY2009CA37272

PATIENT
  Sex: Female

DRUGS (3)
  1. SANDOSTATIN LAR [Suspect]
     Indication: ACROMEGALY
     Dosage: 30 MG, EVERY 4 WEEKS
     Route: 030
     Dates: start: 19990105
  2. SANDOSTATIN LAR [Suspect]
     Dosage: 20 MG EVERY 4 WEEKS
     Route: 030
  3. SANDOSTATIN LAR [Suspect]
     Dosage: 30 MG, EVERY 4 WEEKS
     Route: 030

REACTIONS (11)
  - ARTHRALGIA [None]
  - BONE FORMATION INCREASED [None]
  - FEELING ABNORMAL [None]
  - JOINT EFFUSION [None]
  - JOINT SPRAIN [None]
  - JOINT STIFFNESS [None]
  - MALAISE [None]
  - MYALGIA [None]
  - NEOPLASM [None]
  - SUICIDAL IDEATION [None]
  - VISUAL ACUITY REDUCED [None]
